FAERS Safety Report 6633660-5 (Version None)
Quarter: 2010Q1

REPORT INFORMATION
  Report Type: 
  Country: None (occurrence: None)
  Receive Date: 20100312
  Receipt Date: 20100304
  Transmission Date: 20100710
  Serious: Yes (Hospitalization)
  Sender: FDA-Public Use
  Company Number: US-AMGEN-QUU394339

PATIENT
  Sex: Female
  Weight: 61.3 kg

DRUGS (8)
  1. ENBREL [Suspect]
     Indication: RHEUMATOID ARTHRITIS
     Route: 058
     Dates: start: 20091002
  2. METHOTREXATE [Suspect]
  3. PREDNISONE [Concomitant]
  4. FOLIC ACID [Concomitant]
  5. WELLBUTRIN [Concomitant]
  6. CYMBALTA [Concomitant]
  7. LAMICTAL [Concomitant]
     Dates: start: 20090901
  8. TRAZODONE HCL [Concomitant]
     Dates: start: 20091101

REACTIONS (4)
  - DEPRESSION [None]
  - DIZZINESS [None]
  - LEUKOPENIA [None]
  - STRESS [None]
